FAERS Safety Report 14026029 (Version 2)
Quarter: 2017Q4

REPORT INFORMATION
  Report Type: Spontaneous
  Country: HR (occurrence: HR)
  Receive Date: 20170929
  Receipt Date: 20171016
  Transmission Date: 20180321
  Serious: Yes (Hospitalization)
  Sender: FDA-Public Use
  Company Number: HR-ROCHE-1997161

PATIENT
  Age: 56 Year
  Sex: Female

DRUGS (1)
  1. MABTHERA [Suspect]
     Active Substance: RITUXIMAB
     Indication: RHEUMATOID ARTHRITIS
     Dosage: 2 CYCLES OF RITUXIMAB.
     Route: 042
     Dates: start: 20170208, end: 20170222

REACTIONS (1)
  - Lichen planus [Recovering/Resolving]
